FAERS Safety Report 6527553-1 (Version None)
Quarter: 2010Q1

REPORT INFORMATION
  Report Type: 
  Country: None (occurrence: None)
  Receive Date: 20100105
  Receipt Date: 20091223
  Transmission Date: 20100710
  Serious: Yes (Life-Threatening, Hospitalization, Other)
  Sender: FDA-Public Use
  Company Number: GB-PFIZER INC-2007073173

PATIENT
  Age: 39 Year
  Sex: Male

DRUGS (7)
  1. AMLODIPINE BESYLATE [Suspect]
  2. DOXAZOSIN MESYLATE [Suspect]
     Route: 048
  3. METFORMIN HCL [Suspect]
  4. ACETYLSALICYLIC ACID [Suspect]
  5. DEXTROSE [Concomitant]
     Dosage: 230 MG, UNK
     Route: 042
  6. INSULIN [Concomitant]
  7. POTASSIUM [Concomitant]
     Dosage: 40 MEQ, UNK

REACTIONS (3)
  - HYPOGLYCAEMIA [None]
  - HYPOTENSION [None]
  - OVERDOSE [None]
